FAERS Safety Report 8589817-X (Version None)
Quarter: 2012Q3

REPORT INFORMATION
  Report Type: 
  Country: None (occurrence: None)
  Receive Date: 20120813
  Receipt Date: 20120611
  Transmission Date: 20120928
  Serious: No
  Sender: FDA-Public Use
  Company Number: US-009507513-2012SP033518

PATIENT

DRUGS (1)
  1. DR. SCHOLL'S CLEAR AWAY ONE STEP PLANTAR WART REMOVER [Suspect]
     Indication: SKIN PAPILLOMA
     Dosage: 1 DF, QOD
     Route: 061
     Dates: start: 20120511, end: 20120524

REACTIONS (1)
  - DRUG INEFFECTIVE [None]
